FAERS Safety Report 10390948 (Version 1)
Quarter: 2014Q3

REPORT INFORMATION
  Report Type: Spontaneous
  Country: US (occurrence: None)
  Receive Date: 20140815
  Receipt Date: 20140815
  Transmission Date: 20150326
  Serious: Yes (Hospitalization)
  Sender: FDA-Public Use
  Company Number: VAL_03325_2014

PATIENT
  Age: 2 Month
  Sex: Female

DRUGS (12)
  1. ZANTAC [Concomitant]
     Active Substance: RANITIDINE HYDROCHLORIDE
  2. EPOGEN [Concomitant]
     Active Substance: ERYTHROPOIETIN
  3. CALCIUM CARBONATE. [Concomitant]
     Active Substance: CALCIUM CARBONATE
  4. FOLIC ACID. [Concomitant]
     Active Substance: FOLIC ACID
  5. CAPTOPRIL. [Concomitant]
     Active Substance: CAPTOPRIL
  6. NORVASC [Concomitant]
     Active Substance: AMLODIPINE BESYLATE
  7. SODIUM CHLORIDE. [Concomitant]
     Active Substance: SODIUM CHLORIDE
  8. NICARDIPINE [Concomitant]
     Active Substance: NICARDIPINE
  9. FERROUS FUMARATE [Concomitant]
     Active Substance: FERROUS FUMARATE
  10. CALCITRIOL. [Suspect]
     Active Substance: CALCITRIOL
     Indication: PRODUCT USED FOR UNKNOWN INDICATION
     Route: 048
  11. FERROUS SULFATE [Concomitant]
     Active Substance: FERROUS SULFATE\FERROUS SULFATE, DRIED
  12. PROPANOLOL [Concomitant]
     Active Substance: PROPRANOLOL HYDROCHLORIDE

REACTIONS (6)
  - Pyrexia [None]
  - Viral infection [None]
  - Upper respiratory tract infection [None]
  - Hypocalcaemia [None]
  - Constipation [None]
  - Vomiting [None]

NARRATIVE: CASE EVENT DATE: 20110905
